FAERS Safety Report 6758664-3 (Version None)
Quarter: 2010Q2

REPORT INFORMATION
  Report Type: 
  Country: None (occurrence: None)
  Receive Date: 20100602
  Receipt Date: 20100524
  Transmission Date: 20101027
  Serious: No
  Sender: FDA-Public Use
  Company Number: MIN-00581

PATIENT
  Age: 19 Year
  Sex: Female
  Weight: 58.9676 kg

DRUGS (2)
  1. MINOCYCLINE HCL [Suspect]
     Indication: ACNE PUSTULAR
     Dosage: 100 MG, BID, ORAL
     Route: 048
     Dates: start: 20020601
  2. ORAL CONTRACEPTIVE PILLS [Concomitant]

REACTIONS (5)
  - HAEMOGLOBIN DECREASED [None]
  - PANNICULITIS [None]
  - POLYARTERITIS NODOSA [None]
  - THROMBOSIS [None]
  - VASCULITIS NECROTISING [None]
